FAERS Safety Report 15664771 (Version 1)
Quarter: 2018Q4

REPORT INFORMATION
  Report Type: Spontaneous
  Country: US (occurrence: US)
  Receive Date: 20181128
  Receipt Date: 20181128
  Transmission Date: 20190205
  Serious: Yes (Life-Threatening, Hospitalization, Other)
  Sender: FDA-Public Use
  Company Number: None

PATIENT
  Age: 77 Year
  Sex: Male
  Weight: 82 kg

DRUGS (1)
  1. APIXABAN [Suspect]
     Active Substance: APIXABAN
     Indication: ATRIAL FIBRILLATION
     Route: 048
     Dates: start: 20180717, end: 20181106

REACTIONS (4)
  - Acquired haemophilia [None]
  - Coagulation factor VIII level abnormal [None]
  - Activated partial thromboplastin time prolonged [None]
  - Haemorrhage [None]

NARRATIVE: CASE EVENT DATE: 20181109
